FAERS Safety Report 9706043 (Version 5)
Quarter: 2014Q2

REPORT INFORMATION
  Report Type: Report from Study
  Country: GB (occurrence: GB)
  Receive Date: 20131123
  Receipt Date: 20140422
  Transmission Date: 20141212
  Serious: Yes (Hospitalization, Other)
  Sender: FDA-Public Use
  Company Number: PHFR2013GB006482

PATIENT
  Age: 82 Year
  Sex: Female

DRUGS (3)
  1. LUCENTIS [Suspect]
     Indication: AGE-RELATED MACULAR DEGENERATION
     Dosage: 0.5 MG, UNK
     Route: 031
     Dates: start: 20110329
  2. LUCENTIS [Suspect]
     Dosage: 0.5 MG, UNK
     Route: 031
     Dates: start: 20131112
  3. WARFARIN SODIUM [Suspect]
     Dosage: UNK
     Dates: start: 20110215

REACTIONS (3)
  - Circulatory collapse [Recovered/Resolved]
  - Troponin I increased [Recovering/Resolving]
  - International normalised ratio increased [Recovering/Resolving]
